FAERS Safety Report 4358893-2 (Version None)
Quarter: 2004Q2

REPORT INFORMATION
  Report Type: 
  Country: None (occurrence: None)
  Receive Date: 20040511
  Receipt Date: 20040428
  Transmission Date: 20050107
  Serious: Yes (Other)
  Sender: FDA-Public Use
  Company Number: HQWYE661730APR04

PATIENT
  Age: 42 Year
  Sex: Female
  Weight: 62.65 kg

DRUGS (3)
  1. ADVIL [Suspect]
     Indication: BACK PAIN
     Dosage: 1-2 CAPLETS AS NEEDED, ORAL
     Route: 048
     Dates: end: 20031101
  2. GLUCOSAMINE W/CHONDROITIN SULFATES (ASCORBIC ACID/CHONDROITIN SULFATE/ [Concomitant]
  3. MULTIVIT (VITAMINS NOS) [Concomitant]

REACTIONS (2)
  - DYSPNOEA [None]
  - SWOLLEN TONGUE [None]
